FAERS Safety Report 5128178-5 (Version None)
Quarter: 2006Q4

REPORT INFORMATION
  Report Type: 
  Country: None (occurrence: None)
  Receive Date: 20061011
  Receipt Date: 20060919
  Transmission Date: 20070319
  Serious: Yes (Other)
  Sender: FDA-Public Use
  Company Number: JP200609001628

PATIENT
  Age: 73 Year
  Sex: Female

DRUGS (3)
  1. EVISTA [Suspect]
     Indication: OSTEOPOROSIS
     Dosage: 60 MG, DAILY (1/D), ORAL
     Route: 048
     Dates: start: 20060726, end: 20060801
  2. REMODELLIN (ALFACALCIDOL) [Concomitant]
  3. ASPARA-CA (ASPARTATE CALCIUM) TABLET [Concomitant]

REACTIONS (1)
  - RETINAL VEIN OCCLUSION [None]
